FAERS Safety Report 8174080-4 (Version None)
Quarter: 2012Q1

REPORT INFORMATION
  Report Type: 
  Country: None (occurrence: None)
  Receive Date: 20120224
  Receipt Date: 20120214
  Transmission Date: 20120608
  Serious: Yes (Hospitalization)
  Sender: FDA-Public Use
  Company Number: 2012SP008169

PATIENT
  Sex: Female
  Weight: 95 kg

DRUGS (10)
  1. DEXAMETHASON (DEXAMETHASON /00016001) [Suspect]
     Indication: PRODUCT USED FOR UNKNOWN INDICATION
     Dosage: ;IV
     Route: 042
  2. CYCLIZINE (CYCLIZINE) [Suspect]
     Indication: PRODUCT USED FOR UNKNOWN INDICATION
     Dosage: ;IV
     Route: 042
  3. REMIFENTANIL (REMIFENTANIL) [Suspect]
     Indication: PRODUCT USED FOR UNKNOWN INDICATION
     Dosage: ;IV
     Route: 042
  4. HYOSCINE HBR HYT [Concomitant]
     Indication: PRODUCT USED FOR UNKNOWN INDICATION
     Dosage: ;IV
     Route: 042
     Dates: start: 20111010, end: 20111010
  5. ONDANSETRON [Suspect]
     Indication: PRODUCT USED FOR UNKNOWN INDICATION
     Dosage: ;IV
     Route: 042
  6. MEPERIDINE HYDROCHLORIDE [Suspect]
     Indication: GENERAL ANAESTHESIA
     Dosage: ;IV
     Route: 042
     Dates: start: 20111010, end: 20111010
  7. ATRACURIUM BESYLATE [Suspect]
     Indication: PRODUCT USED FOR UNKNOWN INDICATION
  8. SUPRANE [Suspect]
     Indication: GENERAL ANAESTHESIA
     Dosage: ;ONCE; RESP
     Route: 055
     Dates: start: 20111001
  9. SUPRANE [Suspect]
     Indication: CHOLEDOCHOLITHOTOMY
     Dosage: ;ONCE; RESP
     Route: 055
     Dates: start: 20111001
  10. FENTANYL [Suspect]
     Indication: PRODUCT USED FOR UNKNOWN INDICATION
     Dosage: ;IV
     Route: 042

REACTIONS (5)
  - ALANINE AMINOTRANSFERASE INCREASED [None]
  - BLOOD ALKALINE PHOSPHATASE INCREASED [None]
  - BILE DUCT STONE [None]
  - LIVER FUNCTION TEST ABNORMAL [None]
  - BLOOD BILIRUBIN INCREASED [None]
